FAERS Safety Report 8136413-4 (Version None)
Quarter: 2012Q1

REPORT INFORMATION
  Report Type: 
  Country: None (occurrence: None)
  Receive Date: 20120209
  Receipt Date: 20120131
  Transmission Date: 20120608
  Serious: Yes (Death, Hospitalization)
  Sender: FDA-Public Use
  Company Number: 2011SP059946

PATIENT
  Age: 48 Year
  Sex: Female

DRUGS (8)
  1. VICTRELIS [Suspect]
     Indication: HEPATITIS C VIRUS TEST POSITIVE
     Dosage: 800 MG;TID;PO
     Route: 048
     Dates: start: 20110920, end: 20111208
  2. FERROUS SULFATE TAB [Concomitant]
  3. ALLOPURINOL [Concomitant]
  4. COPEGUS [Suspect]
     Indication: HEPATITIS C VIRUS TEST POSITIVE
     Dosage: 1200 MG;QD;PO
     Route: 048
     Dates: start: 20101001, end: 20111208
  5. ACETAMINOPHEN [Concomitant]
  6. MORPHINE SULFATE [Concomitant]
  7. PEGASYS [Suspect]
     Indication: HEPATITIS C VIRUS TEST POSITIVE
     Dosage: 135 MCG;QW;SC
     Route: 058
     Dates: start: 20101001, end: 20111208
  8. NEORECORMON [Concomitant]

REACTIONS (17)
  - EPISTAXIS [None]
  - HAEMODYNAMIC INSTABILITY [None]
  - HAEMATOMA [None]
  - LUNG DISORDER [None]
  - BONE MARROW TOXICITY [None]
  - THROMBOCYTOPENIA [None]
  - ECCHYMOSIS [None]
  - HAEMOGLOBIN DECREASED [None]
  - CEREBROVASCULAR ACCIDENT [None]
  - ERYTHROPOIESIS ABNORMAL [None]
  - NEUTROPENIA [None]
  - PETECHIAE [None]
  - HEART RATE INCREASED [None]
  - RESPIRATORY DISTRESS [None]
  - MYDRIASIS [None]
  - REFUSAL OF TREATMENT BY PATIENT [None]
  - HAEMORRHAGE [None]
